FAERS Safety Report 8673803 (Version 2)
Quarter: 2012Q4

REPORT INFORMATION
  Report Type: 
  Country: US (occurrence: US)
  Receive Date: 20120719
  Receipt Date: 20121115
  Transmission Date: 20130627
  Serious: Yes (Other)
  Sender: FDA-Public Use
  Company Number: US-PFIZER INC-2012171285

PATIENT
  Age: 55 Year
  Sex: Female

DRUGS (6)
  1. LYRICA [Suspect]
     Dosage: 100 mg, 2x/day
  2. ALBUTEROL [Concomitant]
     Dosage: UNK
  3. NASONEX [Concomitant]
     Dosage: UNK
  4. FIORICET [Concomitant]
     Dosage: UNK
  5. XANAX [Concomitant]
     Dosage: UNK
  6. DULERA [Concomitant]
     Dosage: UNK

REACTIONS (2)
  - Cystitis [Unknown]
  - Anxiety [Unknown]
